FAERS Safety Report 5113712-1 (Version None)
Quarter: 2006Q3

REPORT INFORMATION
  Report Type: 
  Country: None (occurrence: None)
  Receive Date: 20060921
  Receipt Date: 20060921
  Transmission Date: 20061208
  Serious: Yes (Life-Threatening)
  Sender: FDA-Public Use
  Company Number: None

PATIENT
  Age: 74 Year
  Sex: Female
  Weight: 49.4 kg

DRUGS (11)
  1. ASPIRIN [Suspect]
     Indication: CORONARY ARTERY DISEASE
     Dosage: 325MG  PO  QD
     Route: 048
  2. CLOPIDOGREL [Suspect]
     Dosage: 75 MG PO QD
     Route: 048
  3. SIMVASTATIN [Concomitant]
  4. LANSOPRAZOLE [Concomitant]
  5. TEMAZEPAM [Concomitant]
  6. HEPARIN [Concomitant]
  7. METOPROLOL [Concomitant]
  8. DILTIAZEM HCL [Concomitant]
  9. HYDROXYUREA [Concomitant]
  10. APAP TAB [Concomitant]
  11. NYSTATIN [Concomitant]

REACTIONS (3)
  - CARDIAC ARREST [None]
  - ELECTROMECHANICAL DISSOCIATION [None]
  - OCCULT BLOOD POSITIVE [None]
